APPROVED DRUG PRODUCT: CEFTRIAXONE SODIUM
Active Ingredient: CEFTRIAXONE SODIUM
Strength: EQ 10GM BASE/VIAL
Dosage Form/Route: INJECTABLE;INJECTION
Application: A091117 | Product #001 | TE Code: AP
Applicant: ANDA REPOSITORY LLC
Approved: Jan 20, 2017 | RLD: No | RS: No | Type: RX